FAERS Safety Report 5817445-5 (Version None)
Quarter: 2008Q3

REPORT INFORMATION
  Report Type: 
  Country: None (occurrence: None)
  Receive Date: 20080722
  Receipt Date: 20080428
  Transmission Date: 20090109
  Serious: No
  Sender: FDA-Public Use
  Company Number: US-BAYER-200822062NA

PATIENT
  Age: 35 Year
  Sex: Female
  Weight: 65 kg

DRUGS (2)
  1. MIRENA [Suspect]
     Indication: CONTRACEPTION
     Route: 015
     Dates: start: 20080101, end: 20080301
  2. TOPAMAX [Concomitant]
     Indication: MIGRAINE
     Route: 048

REACTIONS (2)
  - ABDOMINAL PAIN LOWER [None]
  - PROCEDURAL COMPLICATION [None]
